FAERS Safety Report 9871109 (Version 2)
Quarter: 2014Q1

REPORT INFORMATION
  Report Type: Spontaneous
  Country: US (occurrence: US)
  Receive Date: 20140205
  Receipt Date: 20140205
  Transmission Date: 20141002
  Serious: Yes (Other)
  Sender: FDA-Public Use
  Company Number: US-GILEAD-2013-0074313

PATIENT
  Age: 46 Year
  Sex: Male
  Weight: 68.4 kg

DRUGS (11)
  1. STRIBILD [Suspect]
     Indication: HIV INFECTION
     Dosage: 1 DF, QD
     Route: 048
     Dates: start: 20130114, end: 20130314
  2. ZYRTEC [Concomitant]
     Dosage: 1 DF, UNK
     Route: 048
  3. SOMA [Concomitant]
     Dosage: 350 MG, UNK
     Route: 048
  4. HYDROCODONE/ACETAMINOPHEN          /00607101/ [Concomitant]
     Dosage: 1 DF, UNK
     Route: 048
  5. DAPSONE [Concomitant]
     Dosage: 100 MG, UNK
     Route: 048
  6. LEXAPRO [Concomitant]
     Dosage: 10 MG, UNK
     Route: 048
  7. XANAX [Concomitant]
     Dosage: 0.25 MG, UNK
     Route: 048
  8. TESTOSTERONE CYPIONATE [Concomitant]
     Dosage: 200 MG, UNK
     Route: 030
  9. CELEBREX [Concomitant]
     Dosage: 200 MG, UNK
     Route: 048
  10. FLONASE [Concomitant]
     Dosage: 50 ?G, UNK
     Route: 045
  11. NORVASC [Concomitant]
     Indication: HYPERTENSION

REACTIONS (1)
  - Rhabdomyolysis [Recovered/Resolved]
